FAERS Safety Report 9025325 (Version 2)
Quarter: 2013Q1

REPORT INFORMATION
  Report Type: Spontaneous
  Country: AU (occurrence: AU)
  Receive Date: 20130122
  Receipt Date: 20130326
  Transmission Date: 20140127
  Serious: Yes (Hospitalization)
  Sender: FDA-Public Use
  Company Number: AU-B.I. PHARMACEUTICALS,INC./RIDGEFIELD-2013-AU-00040AU

PATIENT
  Age: 73 Year
  Sex: Female

DRUGS (2)
  1. PRADAXA [Suspect]
     Dosage: 300 MG
  2. PRADAXA [Suspect]
     Dosage: 220 MG

REACTIONS (5)
  - Rectal haemorrhage [Unknown]
  - Melaena [Unknown]
  - Nausea [Unknown]
  - Vomiting [Unknown]
  - Renal failure [Unknown]
